FAERS Safety Report 6386477-3 (Version None)
Quarter: 2009Q4

REPORT INFORMATION
  Report Type: 
  Country: None (occurrence: None)
  Receive Date: 20091002
  Receipt Date: 20090608
  Transmission Date: 20100525
  Serious: Yes (Other)
  Sender: FDA-Public Use
  Company Number: US-ASTRAZENECA-2009UW14728

PATIENT
  Age: 21259 Day
  Sex: Female
  Weight: 56.7 kg

DRUGS (12)
  1. ARIMIDEX [Suspect]
     Indication: BREAST CANCER
     Route: 048
     Dates: start: 20080901
  2. CALCIUM + D [Concomitant]
  3. AMOXICILLIN [Concomitant]
     Indication: TOOTH INFECTION
     Dates: start: 20090608
  4. NEEM PLANT POWDER [Concomitant]
  5. TUMERIC [Concomitant]
  6. ROSEMARY [Concomitant]
  7. GARLIC RAW [Concomitant]
  8. GINGER [Concomitant]
  9. CUMMIN [Concomitant]
  10. CORIANDER [Concomitant]
  11. SENUGREEK [Concomitant]
  12. APRICOT DRY SEEDS [Concomitant]

REACTIONS (8)
  - ALOPECIA [None]
  - ASTHENIA [None]
  - BLOOD PRESSURE INCREASED [None]
  - FATIGUE [None]
  - HEADACHE [None]
  - INFLUENZA LIKE ILLNESS [None]
  - INSOMNIA [None]
  - PAIN IN EXTREMITY [None]
